FAERS Safety Report 10962509 (Version 1)
Quarter: 2015Q1

REPORT INFORMATION
  Report Type: Spontaneous
  Country: CN (occurrence: CN)
  Receive Date: 20150327
  Receipt Date: 20150327
  Transmission Date: 20150721
  Serious: Yes (Hospitalization)
  Sender: FDA-Public Use
  Company Number: CN-ASTRAZENECA-2015SE25203

PATIENT
  Age: 85 Year
  Sex: Male
  Weight: 65 kg

DRUGS (4)
  1. NON-STEROIDAL DRUG [Concomitant]
  2. NEXIUM I.V. [Suspect]
     Active Substance: ESOMEPRAZOLE SODIUM
     Indication: GASTRIC ULCER
     Dosage: DAILY
     Route: 042
     Dates: start: 20150227, end: 20150317
  3. NEXIUM I.V. [Suspect]
     Active Substance: ESOMEPRAZOLE SODIUM
     Indication: GASTRIC HAEMORRHAGE
     Dosage: DAILY
     Route: 042
     Dates: start: 20150227, end: 20150317
  4. UNSPECIFIED [Concomitant]
     Active Substance: UNSPECIFIED INGREDIENT

REACTIONS (3)
  - Haemoglobin decreased [Not Recovered/Not Resolved]
  - Red blood cell count decreased [Unknown]
  - Platelet count decreased [Not Recovered/Not Resolved]

NARRATIVE: CASE EVENT DATE: 20150310
